FAERS Safety Report 15612711 (Version 2)
Quarter: 2018Q4

REPORT INFORMATION
  Report Type: Spontaneous
  Country: US (occurrence: US)
  Receive Date: 20181113
  Receipt Date: 20181210
  Transmission Date: 20190205
  Serious: Yes (Other)
  Sender: FDA-Public Use
  Company Number: US-RISING PHARMACEUTICALS, INC.-2018RIS00494

PATIENT
  Age: 56 Year
  Sex: Male
  Weight: 74.83 kg

DRUGS (1)
  1. DICLOFENAC SODIUM DELAYED-RELEASE TABLETS USP 75MG [Suspect]
     Active Substance: DICLOFENAC SODIUM
     Indication: BACK PAIN
     Dosage: 75 MG, 2X/DAY ^OFF AND ON^
     Route: 048
     Dates: start: 2016

REACTIONS (2)
  - Drug hypersensitivity [Unknown]
  - Food allergy [Recovered/Resolved]

NARRATIVE: CASE EVENT DATE: 201807
